FAERS Safety Report 24314582 (Version 1)
Quarter: 2024Q3

REPORT INFORMATION
  Report Type: Spontaneous
  Country: US (occurrence: US)
  Receive Date: 20240913
  Receipt Date: 20240913
  Transmission Date: 20241017
  Serious: No
  Sender: ROCHE
  Company Number: US-ROCHE-10000080038

PATIENT
  Sex: Female

DRUGS (15)
  1. ACTEMRA [Suspect]
     Active Substance: TOCILIZUMAB
     Indication: Polymyalgia rheumatica
     Route: 058
  2. ASPIRIN [Concomitant]
     Active Substance: ASPIRIN
  3. ATORVASTATIN [Concomitant]
     Active Substance: ATORVASTATIN
  4. BENADRYL [Concomitant]
     Active Substance: DIPHENHYDRAMINE HYDROCHLORIDE
  5. BIOTIN [Concomitant]
     Active Substance: BIOTIN
  6. BUPROPION [Concomitant]
     Active Substance: BUPROPION
  7. CEFUROXIME [Concomitant]
     Active Substance: CEFUROXIME
  8. CLOPIDOGREL [Concomitant]
     Active Substance: CLOPIDOGREL BISULFATE
  9. DOCUSATE [Concomitant]
     Active Substance: DOCUSATE
  10. LISINOPRIL [Concomitant]
     Active Substance: LISINOPRIL
  11. MACRODANTIN [Concomitant]
     Active Substance: NITROFURANTOIN
  12. METHENAMINE [Concomitant]
     Active Substance: METHENAMINE
  13. METOPROLOL [Concomitant]
     Active Substance: METOPROLOL
  14. TRIAMTERENE [Concomitant]
     Active Substance: TRIAMTERENE
  15. VITAMIN B12 [Concomitant]
     Active Substance: CYANOCOBALAMIN

REACTIONS (3)
  - Contusion [Not Recovered/Not Resolved]
  - Urinary tract infection [Not Recovered/Not Resolved]
  - Fibromyalgia [Not Recovered/Not Resolved]
